FAERS Safety Report 19684425 (Version 3)
Quarter: 2021Q4

REPORT INFORMATION
  Report Type: Report from Study
  Country: GB (occurrence: GB)
  Receive Date: 20210811
  Receipt Date: 20211004
  Transmission Date: 20220304
  Serious: Yes (Hospitalization, Other)
  Sender: FDA-Public Use
  Company Number: NVSC2021GB176439

PATIENT
  Sex: Male

DRUGS (1)
  1. COSENTYX [Suspect]
     Active Substance: SECUKINUMAB
     Indication: Psoriasis
     Dosage: 300 MG, QMO
     Route: 058
     Dates: start: 2017

REACTIONS (4)
  - Lower respiratory tract infection [Unknown]
  - Malaise [Unknown]
  - Skin cancer [Unknown]
  - Product dose omission issue [Unknown]
